FAERS Safety Report 5746386-7 (Version None)
Quarter: 2008Q2

REPORT INFORMATION
  Report Type: 
  Country: None (occurrence: None)
  Receive Date: 20080522
  Receipt Date: 20080507
  Transmission Date: 20081010
  Serious: Yes (Congenital Anomaly)
  Sender: FDA-Public Use
  Company Number: US-BAYER-US-2007-028828

PATIENT
  Sex: Male
  Weight: 2.95 kg

DRUGS (3)
  1. BETASERON [Suspect]
     Indication: MULTIPLE SCLEROSIS
     Route: 064
     Dates: end: 20061123
  2. PROCARDIA XL [Concomitant]
     Route: 064
     Dates: start: 20070130
  3. PRENATAL [Concomitant]
     Route: 064

REACTIONS (3)
  - HYDROCEPHALUS [None]
  - SPINA BIFIDA [None]
  - TALIPES [None]
